FAERS Safety Report 14249385 (Version 2)
Quarter: 2017Q4

REPORT INFORMATION
  Report Type: Spontaneous
  Country: JP (occurrence: JP)
  Receive Date: 20171204
  Receipt Date: 20171213
  Transmission Date: 20180321
  Serious: Yes (Other)
  Sender: FDA-Public Use
  Company Number: JP-ABBVIE-17K-087-2143815-00

PATIENT
  Age: 21 Year
  Sex: Female
  Weight: 50 kg

DRUGS (7)
  1. LANSOPRAZOLE. [Concomitant]
     Active Substance: LANSOPRAZOLE
     Indication: BEHCET^S SYNDROME
     Route: 048
     Dates: start: 20170527
  2. HUMIRA [Suspect]
     Active Substance: ADALIMUMAB
     Indication: PRODUCT USED FOR UNKNOWN INDICATION
     Route: 058
  3. MAGNESIUM OXIDE. [Concomitant]
     Active Substance: MAGNESIUM OXIDE
     Indication: CONSTIPATION
     Route: 048
     Dates: start: 20170222
  4. CLOSTRIDIUM BUTYRICUM [Concomitant]
     Active Substance: CLOSTRIDIUM BUTYRICUM SPORES STRAIN M-55
     Indication: BEHCET^S SYNDROME
     Route: 048
     Dates: start: 20170527
  5. MESALAZINE [Concomitant]
     Active Substance: MESALAMINE
     Indication: BEHCET^S SYNDROME
     Route: 048
  6. QUETIAPINE FUMARATE. [Concomitant]
     Active Substance: QUETIAPINE FUMARATE
     Indication: PERSONALITY DISORDER
     Route: 048
  7. PREDNISOLONE. [Concomitant]
     Active Substance: PREDNISOLONE
     Indication: BEHCET^S SYNDROME
     Route: 048
     Dates: start: 20170603, end: 20170614

REACTIONS (5)
  - Exposure during pregnancy [Unknown]
  - Live birth [Unknown]
  - Premature delivery [Unknown]
  - Uterine hypertonus [Unknown]
  - Premature labour [Unknown]

NARRATIVE: CASE EVENT DATE: 20170708
